FAERS Safety Report 26149948 (Version 1)
Quarter: 2025Q4

REPORT INFORMATION
  Report Type: Spontaneous
  Country: US (occurrence: None)
  Receive Date: 20251211
  Receipt Date: 20251211
  Transmission Date: 20260117
  Serious: Yes (Hospitalization)
  Sender: FDA-CTU
  Company Number: None

PATIENT
  Age: 86 Year
  Sex: Male

DRUGS (1)
  1. TOLVAPTAN [Suspect]
     Active Substance: TOLVAPTAN
     Indication: Inappropriate antidiuretic hormone secretion
     Dosage: 30MG DAILY

REACTIONS (2)
  - Blood sodium abnormal [None]
  - Thyroid disorder [None]
